FAERS Safety Report 8690277 (Version 2)
Quarter: 2013Q1

REPORT INFORMATION
  Report Type: Spontaneous
  Country: US (occurrence: US)
  Receive Date: 20120727
  Receipt Date: 20130208
  Transmission Date: 20140127
  Serious: Yes (Hospitalization)
  Sender: FDA-Public Use
  Company Number: US-ASTRAZENECA-2012SE19354

PATIENT
  Sex: Female

DRUGS (4)
  1. SEROQUEL [Suspect]
     Indication: DEPRESSION
     Route: 048
     Dates: start: 2009
  2. SEROQUEL [Suspect]
     Indication: SLEEP DISORDER
     Route: 048
     Dates: start: 2009
  3. SEROQUEL [Suspect]
     Indication: DEPRESSION
     Route: 048
  4. SEROQUEL [Suspect]
     Indication: SLEEP DISORDER
     Route: 048

REACTIONS (11)
  - Adverse drug reaction [Unknown]
  - Feeling abnormal [Unknown]
  - Confusional state [Unknown]
  - Anxiety [Unknown]
  - Pain [Unknown]
  - Abnormal behaviour [Unknown]
  - Nervousness [Unknown]
  - Agitation [Unknown]
  - Vomiting [Unknown]
  - Tremor [Unknown]
  - Off label use [Unknown]
